FAERS Safety Report 21649161 (Version 1)
Quarter: 2022Q4

REPORT INFORMATION
  Report Type: Spontaneous
  Country: US (occurrence: None)
  Receive Date: 20221123
  Receipt Date: 20221123
  Transmission Date: 20230113
  Serious: No
  Sender: FDA-Public Use
  Company Number: None

PATIENT
  Sex: Female

DRUGS (1)
  1. OTEZLA [Suspect]
     Active Substance: APREMILAST
     Indication: Rheumatoid arthritis
     Dosage: DAY 1: 10MG IN AM, DAY 2: 10MG AM AND PM, DAY 3: 10MG AM AND 20MG PM, DAY 4: 20MG AND PM, DAY 5: 20M
     Route: 048
     Dates: start: 20221101

REACTIONS (2)
  - Pain [None]
  - Drug ineffective [None]
